FAERS Safety Report 10149628 (Version 2)
Quarter: 2014Q2

REPORT INFORMATION
  Report Type: Spontaneous
  Country: US (occurrence: US)
  Receive Date: 20140502
  Receipt Date: 20140506
  Transmission Date: 20141212
  Serious: No
  Sender: FDA-Public Use
  Company Number: US-PFIZER INC-2014119305

PATIENT
  Sex: Female

DRUGS (2)
  1. ADVIL [Suspect]
     Indication: BACK PAIN
     Dosage: 800 MG, 3X/DAY
  2. METAXALONE [Interacting]
     Indication: BACK PAIN
     Dosage: 800 MG, 3X/DAY

REACTIONS (6)
  - Overdose [Unknown]
  - Drug interaction [Unknown]
  - Urticaria [Unknown]
  - Hypersensitivity [Unknown]
  - Pruritus [Unknown]
  - Peripheral swelling [Unknown]
